FAERS Safety Report 4448466-5 (Version None)
Quarter: 2004Q3

REPORT INFORMATION
  Report Type: 
  Country: None (occurrence: None)
  Receive Date: 20040909
  Receipt Date: 20040906
  Transmission Date: 20050211
  Serious: Yes (Hospitalization)
  Sender: FDA-Public Use
  Company Number: 200412640GDS

PATIENT
  Age: 65 Year
  Sex: Female

DRUGS (2)
  1. ASPIRIN [Suspect]
     Indication: ANTICOAGULANT THERAPY
     Dosage: ORAL
     Route: 048
  2. WARFARIN POTASSIUM [Suspect]
     Indication: ANTICOAGULANT THERAPY
     Dosage: ORAL
     Route: 048

REACTIONS (6)
  - CHEST PAIN [None]
  - GASTRIC HAEMORRHAGE [None]
  - HAEMORRHAGIC DIATHESIS [None]
  - INFLAMMATION [None]
  - MUCOSAL HAEMORRHAGE [None]
  - OESOPHAGEAL ULCER HAEMORRHAGE [None]
